FAERS Safety Report 18779718 (Version 1)
Quarter: 2021Q1

REPORT INFORMATION
  Report Type: Spontaneous
  Country: US (occurrence: US)
  Receive Date: 20210125
  Receipt Date: 20210125
  Transmission Date: 20210419
  Serious: No
  Sender: FDA-Public Use
  Company Number: US-TAKEDA-2021TUS002467

PATIENT
  Sex: Male
  Weight: 84 kg

DRUGS (4)
  1. VELCADE [Suspect]
     Active Substance: BORTEZOMIB
     Indication: PLASMA CELL MYELOMA IN REMISSION
     Dosage: 2.6 MILLIGRAM, Q2WEEKS
     Route: 058
  2. VALACYCLOVIR [Concomitant]
     Active Substance: VALACYCLOVIR HYDROCHLORIDE
     Dosage: UNK
     Route: 065
  3. DENOSUMAB [Concomitant]
     Active Substance: DENOSUMAB
     Dosage: UNK
     Route: 065
  4. VELCADE [Suspect]
     Active Substance: BORTEZOMIB
     Dosage: 2.7 MILLIGRAM
     Route: 058
     Dates: start: 20200111

REACTIONS (4)
  - Sleep disorder [Recovering/Resolving]
  - Weight fluctuation [Unknown]
  - Chills [Not Recovered/Not Resolved]
  - Muscle twitching [Not Recovered/Not Resolved]
